FAERS Safety Report 7620980-0 (Version None)
Quarter: 2011Q3

REPORT INFORMATION
  Report Type: 
  Country: None (occurrence: None)
  Receive Date: 20110719
  Receipt Date: 20100621
  Transmission Date: 20111222
  Serious: No
  Sender: FDA-Public Use
  Company Number: US-KINGPHARMUSA00001-K201000782

PATIENT
  Age: 70 Year
  Sex: Male
  Weight: 70.295 kg

DRUGS (2)
  1. LEVOXYL [Suspect]
     Indication: HYPOTHYROIDISM
     Dosage: 75 MCG ALTERNATED QOD WITH 88 MCG
     Route: 048
  2. LEVOXYL [Suspect]
     Dosage: 75 MCG, QD
     Route: 048

REACTIONS (1)
  - DRUG EFFECT DECREASED [None]
